FAERS Safety Report 20704397 (Version 1)
Quarter: 2022Q2

REPORT INFORMATION
  Report Type: Spontaneous
  Country: US (occurrence: None)
  Receive Date: 20220412
  Receipt Date: 20220412
  Transmission Date: 20220721
  Serious: No
  Sender: FDA-Public Use
  Company Number: None

PATIENT
  Age: 39 Year
  Sex: Male
  Weight: 70.67 kg

DRUGS (4)
  1. GLEOSTINE [Suspect]
     Active Substance: LOMUSTINE
     Indication: Brain neoplasm malignant
     Dosage: OTHER FREQUENCY : ONCE EVERY 6 WEEKS;?
     Route: 048
     Dates: start: 20211027
  2. KEPPRA [Suspect]
     Active Substance: LEVETIRACETAM
  3. SILDENAFIL CITRATE [Concomitant]
  4. VIMPAT [Suspect]
     Active Substance: LACOSAMIDE

REACTIONS (1)
  - Disease progression [None]
